FAERS Safety Report 8805553 (Version 1)
Quarter: 2012Q4

REPORT INFORMATION
  Report Type: 
  Country: US (occurrence: US)
  Receive Date: 20120924
  Receipt Date: 20120924
  Transmission Date: 20130627
  Serious: Yes (Death)
  Sender: FDA-Public Use
  Company Number: US-ROCHE-1127109

PATIENT
  Sex: Female

DRUGS (10)
  1. AVASTIN [Suspect]
     Indication: BREAST CANCER FEMALE
     Route: 065
  2. AVASTIN [Suspect]
     Route: 065
     Dates: start: 20060713
  3. AVASTIN [Suspect]
     Route: 065
     Dates: start: 20060731
  4. AVASTIN [Suspect]
     Route: 065
     Dates: start: 20060814
  5. AVASTIN [Suspect]
     Route: 065
     Dates: start: 20060905
  6. AVASTIN [Suspect]
     Route: 065
     Dates: start: 20060926
  7. AVASTIN [Suspect]
     Route: 065
     Dates: start: 20061010
  8. AVASTIN [Suspect]
     Route: 065
     Dates: start: 20061114
  9. AVASTIN [Suspect]
     Route: 065
     Dates: start: 20061129
  10. AVASTIN [Suspect]
     Route: 065
     Dates: start: 20061214

REACTIONS (1)
  - Death [Fatal]
